FAERS Safety Report 9331866 (Version 1)
Quarter: 2013Q2

REPORT INFORMATION
  Report Type: Report from Study
  Country: US (occurrence: US)
  Receive Date: 20130605
  Receipt Date: 20130605
  Transmission Date: 20140414
  Serious: Yes (Life-Threatening, Hospitalization)
  Sender: FDA-Public Use
  Company Number: US-ALEXION PHARMACEUTICALS INC.-A201301067

PATIENT
  Age: 58 Year
  Sex: Female

DRUGS (2)
  1. SOLIRIS [Suspect]
     Indication: HAEMOLYTIC URAEMIC SYNDROME
     Dosage: UNK
     Route: 042
  2. PREDNISONE [Concomitant]
     Dosage: 10 MG, QD

REACTIONS (12)
  - Dermatitis exfoliative [Recovered/Resolved]
  - Renal mass [Unknown]
  - Thrombotic thrombocytopenic purpura [Unknown]
  - Thrombotic microangiopathy [Unknown]
  - Renal failure acute [Unknown]
  - Thrombocytopenia [Unknown]
  - Haemolytic anaemia [Unknown]
  - Delirium [Unknown]
  - Scleroderma [Unknown]
  - Malnutrition [Unknown]
  - Weight decreased [Unknown]
  - Drug dose omission [Unknown]
